FAERS Safety Report 9331734 (Version 1)
Quarter: 2013Q2

REPORT INFORMATION
  Report Type: Spontaneous
  Country: IE (occurrence: None)
  Receive Date: 20130531
  Receipt Date: 20130531
  Transmission Date: 20140414
  Serious: Yes (Death)
  Sender: FDA-Public Use
  Company Number: FK201301657

PATIENT
  Age: 19 Year
  Sex: Male

DRUGS (5)
  1. MANNITOL [Suspect]
     Indication: PRODUCT USED FOR UNKNOWN INDICATION
  2. POTASSIUM (POTASSIUM) [Concomitant]
  3. NOREPINEPHRINE (NOREPINEPHRINE) [Concomitant]
  4. SEDATIVES [Concomitant]
  5. ANALGESICS (ANALGESICS) [Concomitant]

REACTIONS (8)
  - Electrolyte imbalance [None]
  - Blood sodium increased [None]
  - Blood potassium decreased [None]
  - Hyperkalaemia [None]
  - Ventricular tachycardia [None]
  - Tachycardia [None]
  - Hypotension [None]
  - Stress cardiomyopathy [None]
